FAERS Safety Report 19190500 (Version 1)
Quarter: 2021Q2

REPORT INFORMATION
  Report Type: Spontaneous
  Country: KR (occurrence: KR)
  Receive Date: 20210428
  Receipt Date: 20210428
  Transmission Date: 20210717
  Serious: Yes (Other)
  Sender: FDA-Public Use
  Company Number: KR-FRESENIUS KABI-FK202104299

PATIENT
  Age: 58 Year
  Sex: Female

DRUGS (1)
  1. MORPHINE SULFATE INJECTION (MANUFACTURER UNKNOWN) [Suspect]
     Active Substance: MORPHINE SULFATE
     Indication: BACK PAIN
     Dosage: CONCENTRATION 10 MG/ML, BASAL RATE: 0.1653 MG/HR., FLEX RATE (8 H): 0.143 MG/HR.
     Route: 037

REACTIONS (6)
  - Stupor [Recovered/Resolved]
  - Overdose [Recovered/Resolved]
  - Respiratory acidosis [Recovered/Resolved]
  - Hypoxia [Recovered/Resolved]
  - Hypercapnia [Recovered/Resolved]
  - Respiratory rate decreased [Recovered/Resolved]
